FAERS Safety Report 4872991-6 (Version None)
Quarter: 2006Q1

REPORT INFORMATION
  Report Type: 
  Country: None (occurrence: None)
  Receive Date: 20060105
  Receipt Date: 20060103
  Transmission Date: 20060701
  Serious: Yes (Hospitalization)
  Sender: FDA-Public Use
  Company Number: 2006CG00015

PATIENT
  Age: 46 Year
  Sex: Male

DRUGS (4)
  1. NEXIUM [Suspect]
     Route: 048
     Dates: start: 20051004, end: 20051020
  2. TIENAM [Suspect]
     Indication: BRONCHITIS ACUTE
     Route: 042
     Dates: start: 20051003, end: 20051017
  3. HYDROCORTISONE [Concomitant]
     Indication: BRONCHITIS CHRONIC
     Route: 048
  4. AMIKLIN [Concomitant]
     Indication: BRONCHITIS ACUTE
     Route: 042
     Dates: start: 20051003, end: 20051017

REACTIONS (2)
  - AGRANULOCYTOSIS [None]
  - PYREXIA [None]
